FAERS Safety Report 7546223-4 (Version None)
Quarter: 2011Q2

REPORT INFORMATION
  Report Type: 
  Country: None (occurrence: None)
  Receive Date: 20110614
  Receipt Date: 20110610
  Transmission Date: 20111010
  Serious: Yes (Hospitalization)
  Sender: FDA-Public Use
  Company Number: JP-PFIZER INC-2011127939

PATIENT
  Age: 76 Year
  Sex: Male

DRUGS (1)
  1. NORVASC [Suspect]
     Dosage: 5 MG, 1X/DAY

REACTIONS (3)
  - PAIN [None]
  - GAIT DISTURBANCE [None]
  - ASTHENIA [None]
